FAERS Safety Report 22119125 (Version 1)
Quarter: 2023Q1

REPORT INFORMATION
  Report Type: Spontaneous
  Country: US (occurrence: None)
  Receive Date: 20230320
  Receipt Date: 20230320
  Transmission Date: 20230417
  Serious: Yes (Other)
  Sender: FDA-Public Use
  Company Number: None

PATIENT
  Age: 68 Year
  Sex: Female
  Weight: 53.1 kg

DRUGS (6)
  1. CIPROFLOXACIN [Suspect]
     Active Substance: CIPROFLOXACIN
     Indication: Diverticulitis
     Dates: start: 20230228, end: 20230301
  2. FLAGYL [Suspect]
     Active Substance: METRONIDAZOLE\METRONIDAZOLE HYDROCHLORIDE
  3. multi vitamin and mineral daily [Concomitant]
  4. CALCIUM [Concomitant]
     Active Substance: CALCIUM
  5. oregamax ( pill daily) [Concomitant]
  6. oil of oreganol (a couple of drops daily) [Concomitant]

REACTIONS (1)
  - Tendonitis [None]

NARRATIVE: CASE EVENT DATE: 20230228
